FAERS Safety Report 6403373-3 (Version None)
Quarter: 2009Q4

REPORT INFORMATION
  Report Type: 
  Country: None (occurrence: None)
  Receive Date: 20091016
  Receipt Date: 20091008
  Transmission Date: 20100525
  Serious: Yes (Hospitalization)
  Sender: FDA-Public Use
  Company Number: AU-ROCHE-661220

PATIENT
  Sex: Female

DRUGS (4)
  1. TAMIFLU [Suspect]
     Indication: INFLUENZA
     Route: 065
     Dates: start: 20090828, end: 20090830
  2. AUGMENTIN FORTE [Suspect]
     Indication: INFLUENZA
     Route: 065
     Dates: start: 20090828
  3. EFFEXOR [Concomitant]
     Dosage: DRUG: EFEXOR-XR
  4. WARFARIN SODIUM [Concomitant]

REACTIONS (3)
  - INTERNATIONAL NORMALISED RATIO INCREASED [None]
  - SWELLING [None]
  - URTICARIA [None]
